FAERS Safety Report 7270962-6 (Version None)
Quarter: 2011Q1

REPORT INFORMATION
  Report Type: 
  Country: None (occurrence: None)
  Receive Date: 20110202
  Receipt Date: 20110131
  Transmission Date: 20110831
  Serious: Yes (Other)
  Sender: FDA-Public Use
  Company Number: US-PFIZER INC-2011001623

PATIENT
  Sex: Female
  Weight: 68 kg

DRUGS (3)
  1. NIFEDIPINE [Suspect]
     Indication: HYPERTENSION
     Dosage: UNK
  2. ATENOLOL [Concomitant]
     Indication: HYPERTENSION
     Dosage: UNK
  3. PROCARDIA [Suspect]
     Indication: HYPERTENSION
     Dosage: UNK
     Dates: start: 20090101

REACTIONS (4)
  - PALPITATIONS [None]
  - RENAL DISORDER [None]
  - BLOOD PRESSURE INADEQUATELY CONTROLLED [None]
  - MALAISE [None]
